FAERS Safety Report 12751507 (Version 1)
Quarter: 2016Q3

REPORT INFORMATION
  Report Type: Spontaneous
  Country: US (occurrence: US)
  Receive Date: 20160915
  Receipt Date: 20160915
  Transmission Date: 20161109
  Serious: No
  Sender: FDA-Public Use
  Company Number: US-ASTELLAS-2015US036580

PATIENT
  Age: 64 Year
  Sex: Male

DRUGS (1)
  1. XTANDI [Suspect]
     Active Substance: ENZALUTAMIDE
     Indication: HORMONE-REFRACTORY PROSTATE CANCER
     Dosage: 160 MG (4X 40 MG), ONCE DAILY BY MOUTH
     Route: 048
     Dates: start: 201509

REACTIONS (9)
  - Back pain [Recovered/Resolved]
  - Myalgia [Recovering/Resolving]
  - Cough [Not Recovered/Not Resolved]
  - Musculoskeletal pain [Recovering/Resolving]
  - Bronchospasm [Recovered/Resolved]
  - Nasal congestion [Recovered/Resolved]
  - Throat irritation [Not Recovered/Not Resolved]
  - Muscular weakness [Unknown]
  - Hypersensitivity [Recovered/Resolved]

NARRATIVE: CASE EVENT DATE: 201507
